FAERS Safety Report 19964982 (Version 1)
Quarter: 2021Q4

REPORT INFORMATION
  Report Type: Spontaneous
  Country: FR (occurrence: FR)
  Receive Date: 20211018
  Receipt Date: 20211018
  Transmission Date: 20220304
  Serious: Yes (Death)
  Sender: FDA-Public Use
  Company Number: FR-CHIESI-2020CHF01242

PATIENT
  Age: 1 Day
  Sex: Female

DRUGS (4)
  1. CUROSURF [Suspect]
     Active Substance: PORACTANT ALFA
     Indication: Neonatal respiratory distress syndrome
     Dosage: 240 MILLIGRAM
     Route: 007
     Dates: start: 20200311
  2. CAFFEINE [Concomitant]
     Active Substance: CAFFEINE
     Indication: Product used for unknown indication
     Dosage: 20 MILLIGRAM/KILOGRAM, QD
     Dates: start: 20200311
  3. VITAMIN K [Concomitant]
     Active Substance: PHYTONADIONE
     Indication: Product used for unknown indication
     Dosage: 2 MILLIGRAM, QD
     Dates: start: 20200311
  4. ATROPINE [Concomitant]
     Active Substance: ATROPINE
     Indication: Product used for unknown indication
     Dosage: 108 MILLIGRAM/KILOGRAM, QD
     Dates: start: 20200311

REACTIONS (1)
  - Neonatal pneumothorax [Fatal]

NARRATIVE: CASE EVENT DATE: 20200311
